FAERS Safety Report 9419500 (Version 1)
Quarter: 2013Q3

REPORT INFORMATION
  Report Type: Spontaneous
  Country: CA (occurrence: CA)
  Receive Date: 20130725
  Receipt Date: 20130725
  Transmission Date: 20140515
  Serious: Yes (Other)
  Sender: FDA-Public Use
  Company Number: CA-ROCHE-1251224

PATIENT
  Age: 54 Year
  Sex: Male

DRUGS (21)
  1. ZIAGEN [Suspect]
     Indication: PRODUCT USED FOR UNKNOWN INDICATION
     Dosage: THERAPY DURATION WAS 2.0 MONTHS
     Route: 065
  2. ZIDOVUDINE [Suspect]
     Indication: PRODUCT USED FOR UNKNOWN INDICATION
     Dosage: THERAPY DURATION WAS 5.0 MONTHS
     Route: 065
  3. ZERIT [Suspect]
     Indication: PRODUCT USED FOR UNKNOWN INDICATION
     Dosage: THERAPY DURATION WAS 60.0 MONTHS
     Route: 065
  4. LAMIVUDINE [Suspect]
     Indication: PRODUCT USED FOR UNKNOWN INDICATION
     Dosage: THERAPY DURATION WAS 44.0 MONTHS
     Route: 065
  5. LAMIVUDINE [Suspect]
     Dosage: THERAPY DURATION WAS 61.0 MONTHS
     Route: 065
  6. LAMIVUDINE [Suspect]
     Dosage: THERAPY DURATION WAS 105.0 MONTHS
     Route: 065
  7. RITONAVIR [Suspect]
     Indication: PRODUCT USED FOR UNKNOWN INDICATION
     Dosage: THERAPY DURATION WAS 44.0 MONTHS
     Route: 065
  8. FUZEON [Suspect]
     Indication: PRODUCT USED FOR UNKNOWN INDICATION
     Dosage: THERAPY DURATION WAS 12.0 MONTHS
     Route: 065
  9. SAQUINAVIR [Suspect]
     Indication: PRODUCT USED FOR UNKNOWN INDICATION
     Dosage: THERAPY DURATION WAS 2.0 MONTHS
     Route: 065
  10. CRIXIVAN [Suspect]
     Indication: PRODUCT USED FOR UNKNOWN INDICATION
     Dosage: THERAPY DURATION WAS 33.0 MONTHS
     Route: 065
  11. KALETRA [Suspect]
     Indication: PRODUCT USED FOR UNKNOWN INDICATION
     Dosage: THERAPY DURATION WAS 44.0 MONTHS
     Route: 065
  12. REYATAZ [Suspect]
     Indication: PRODUCT USED FOR UNKNOWN INDICATION
     Dosage: THERAPY DURATION WAS 27.0 MONTHS
     Route: 065
  13. REYATAZ [Suspect]
     Dosage: THERAPY DURATION WAS 5.0 MONTHS
     Route: 065
  14. STAVUDINE (D4T) [Suspect]
     Indication: PRODUCT USED FOR UNKNOWN INDICATION
     Dosage: THERAPY DURATION WAS 60.0 MONTHS
     Route: 065
  15. VIDEX EC [Suspect]
     Indication: PRODUCT USED FOR UNKNOWN INDICATION
     Dosage: THERAPY DURATION WAS 44.0 MONTHS
     Route: 065
  16. VIDEX EC [Suspect]
     Dosage: THERAPY DURATION WAS 35.0 MONTHS
     Route: 065
  17. VIDEX EC [Suspect]
     Dosage: THERAPY DURATION WAS 79.0 MONTHS
     Route: 065
  18. VIRAMUNE [Suspect]
     Indication: PRODUCT USED FOR UNKNOWN INDICATION
     Dosage: THERAPY DURATION WAS 44.0 MONTHS
     Route: 065
  19. VIRAMUNE [Suspect]
     Dosage: THERAPY DURATION WAS 31.0 MONTHS
     Route: 065
  20. VIRAMUNE [Suspect]
     Dosage: THERAPY DURATION WAS 75.0 MONTHS
     Route: 065
  21. VIREAD [Suspect]
     Indication: PRODUCT USED FOR UNKNOWN INDICATION
     Dosage: THERAPY DURATION WAS 27.0 MONTHS
     Route: 065

REACTIONS (7)
  - Blood lactic acid increased [Not Recovered/Not Resolved]
  - Diplopia [Not Recovered/Not Resolved]
  - Dysphagia [Not Recovered/Not Resolved]
  - Eyelid ptosis [Not Recovered/Not Resolved]
  - Lipodystrophy acquired [Not Recovered/Not Resolved]
  - Mitochondrial toxicity [Not Recovered/Not Resolved]
  - Progressive external ophthalmoplegia [Not Recovered/Not Resolved]
